FAERS Safety Report 4294691-6 (Version None)
Quarter: 2004Q1

REPORT INFORMATION
  Report Type: 
  Country: None (occurrence: None)
  Receive Date: 20040213
  Receipt Date: 20040205
  Transmission Date: 20041129
  Serious: Yes (Other)
  Sender: FDA-Public Use
  Company Number: PHBS2004US01841

PATIENT
  Age: 82 Year
  Sex: Female

DRUGS (5)
  1. CLOZAPINE [Suspect]
     Dosage: UNK, UNK
     Route: 065
  2. CLOZAPINE [Suspect]
     Dosage: 150 MG/D
     Route: 065
  3. VENLAFAXINE HCL [Concomitant]
     Dosage: 375 MG/D
     Route: 065
  4. LITHIUM CARBONATE [Concomitant]
     Dosage: 450 MG/D
     Route: 065
  5. ARIPIPRAZOLE [Concomitant]
     Dosage: 15 MG/D
     Route: 065

REACTIONS (6)
  - COGWHEEL RIGIDITY [None]
  - DYSARTHRIA [None]
  - DYSTONIA [None]
  - EXTRAPYRAMIDAL DISORDER [None]
  - PLEUROTHOTONUS [None]
  - TREMOR [None]
